FAERS Safety Report 21270233 (Version 1)
Quarter: 2022Q3

REPORT INFORMATION
  Report Type: Report from Study
  Country: US (occurrence: US)
  Receive Date: 20220830
  Receipt Date: 20220830
  Transmission Date: 20221026
  Serious: Yes (Death, Other)
  Sender: FDA-Public Use
  Company Number: US-SERVIER-S22008823

PATIENT

DRUGS (13)
  1. PEGASPARGASE [Suspect]
     Active Substance: PEGASPARGASE
     Indication: B-cell type acute leukaemia
     Dosage: 4875 U
     Route: 042
     Dates: start: 20220211, end: 20220714
  2. RUXOLITINIB [Suspect]
     Active Substance: RUXOLITINIB
     Indication: B-cell type acute leukaemia
     Dosage: 50 MG/M2, BID
     Route: 048
     Dates: start: 20220128, end: 20220724
  3. CYCLOPHOSPHAMIDE [Suspect]
     Active Substance: CYCLOPHOSPHAMIDE
     Indication: B-cell type acute leukaemia
     Dosage: 1000 MG/M2
     Route: 042
     Dates: start: 20220128, end: 20220309
  4. CYTARABINE [Suspect]
     Active Substance: CYTARABINE
     Indication: B-cell type acute leukaemia
     Dosage: 75 MG/M2
     Route: 042
     Dates: start: 20220128, end: 20220319
  5. MERCAPTOPURINE [Suspect]
     Active Substance: MERCAPTOPURINE
     Indication: B-cell type acute leukaemia
     Dosage: 60 MG/M2
     Route: 048
     Dates: start: 20220128, end: 20220419
  6. MERCAPTOPURINE [Suspect]
     Active Substance: MERCAPTOPURINE
     Dosage: 25 MG/M2
     Route: 048
     Dates: start: 20220419, end: 20220628
  7. VINCRISTINE [Suspect]
     Active Substance: VINCRISTINE
     Indication: B-cell type acute leukaemia
     Dosage: .5 MG/M2
     Route: 042
     Dates: start: 20220211, end: 20220725
  8. METHOTREXATE [Suspect]
     Active Substance: METHOTREXATE
     Indication: B-cell type acute leukaemia
     Dosage: 15 MG
     Route: 037
     Dates: start: 20220128, end: 20220711
  9. METHOTREXATE [Suspect]
     Active Substance: METHOTREXATE
     Dosage: 5000 MG/M2, HIGH DOSE
     Route: 042
     Dates: start: 20220419, end: 20220614
  10. LEUCOVORIN [Suspect]
     Active Substance: LEUCOVORIN
     Indication: B-cell type acute leukaemia
     Dosage: 15 MG/M2
     Route: 042
     Dates: start: 20220421, end: 20220616
  11. DEXAMETHASONE [Suspect]
     Active Substance: DEXAMETHASONE
     Indication: B-cell type acute leukaemia
     Dosage: 5 MG/M2
     Route: 048
     Dates: start: 20220708, end: 20220725
  12. DOXORUBICIN [Suspect]
     Active Substance: DOXORUBICIN
     Indication: B-cell type acute leukaemia
     Dosage: UNK
     Route: 042
  13. ONDANSETRON [Concomitant]
     Active Substance: ONDANSETRON
     Indication: Product used for unknown indication
     Dosage: UNK
     Route: 065

REACTIONS (4)
  - Pancreatitis acute [Fatal]
  - Neutropenia [Fatal]
  - Shock [Fatal]
  - COVID-19 [Fatal]

NARRATIVE: CASE EVENT DATE: 20220802
